FAERS Safety Report 9207949 (Version 2)
Quarter: 2013Q2

REPORT INFORMATION
  Report Type: Report from Study
  Country: US (occurrence: US)
  Receive Date: 20130403
  Receipt Date: 20130418
  Transmission Date: 20140414
  Serious: Yes (Hospitalization)
  Sender: FDA-Public Use
  Company Number: US-US-EMD SERONO, INC.-7202628

PATIENT
  Age: 47 Year
  Sex: Male

DRUGS (4)
  1. REBIF [Suspect]
     Indication: MULTIPLE SCLEROSIS
     Dates: start: 20080130, end: 20121026
  2. REBIF [Suspect]
     Route: 058
     Dates: start: 20130305
  3. REBIF [Suspect]
     Route: 058
     Dates: start: 201304
  4. LORAZEPAM [Concomitant]
     Indication: DEPRESSED MOOD

REACTIONS (2)
  - Multiple sclerosis relapse [Recovered/Resolved]
  - Thinking abnormal [Recovering/Resolving]
